FAERS Safety Report 21288996 (Version 1)
Quarter: 2022Q3

REPORT INFORMATION
  Report Type: Spontaneous
  Country: US (occurrence: US)
  Receive Date: 20220902
  Receipt Date: 20220902
  Transmission Date: 20221027
  Serious: Yes (Hospitalization, Other)
  Sender: FDA-Public Use
  Company Number: US-ABBVIE-22K-163-4364973-00

PATIENT
  Age: 74 Year
  Sex: Male
  Weight: 86.260 kg

DRUGS (5)
  1. IMBRUVICA [Suspect]
     Active Substance: IBRUTINIB
     Indication: Leukaemia
     Dosage: ONE TABLET EVERYDAY WITH GLASS OF WATER, DO NOT CRUSH, CHEW, BREAK, DISSOLVE CUT OR OPEN
     Route: 048
     Dates: start: 20210215
  2. TYLENOL [Concomitant]
     Active Substance: ACETAMINOPHEN
     Indication: Product used for unknown indication
     Dosage: ACETAMINOPHEN, 2 CAPSULE PRN Q6H
     Route: 048
  3. INDOMETHACIN [Concomitant]
     Active Substance: INDOMETHACIN
     Indication: Gout
     Dosage: 1 CAPSULE 4 TIMES PER DAY, ADMINISTER WITH FOOD OR MILK
     Route: 048
  4. INDOMETHACIN [Concomitant]
     Active Substance: INDOMETHACIN
     Indication: Pain
  5. QUESTRAN [Concomitant]
     Active Substance: CHOLESTYRAMINE
     Indication: Diarrhoea
     Dosage: W/MEAL AVOID OTHER MEDS WITHIN 1HR BEFORE OR 4-6HR AFTER MED,1 POWDER 2 TIMES /DAY AS REQ
     Route: 048

REACTIONS (5)
  - Chronic lymphocytic leukaemia stage 3 [Recovering/Resolving]
  - Hospitalisation [Recovered/Resolved]
  - Gout [Unknown]
  - Nasopharyngitis [Not Recovered/Not Resolved]
  - Infection [Recovered/Resolved]

NARRATIVE: CASE EVENT DATE: 20211111
